FAERS Safety Report 13996307 (Version 2)
Quarter: 2017Q4

REPORT INFORMATION
  Report Type: Spontaneous
  Country: JP (occurrence: JP)
  Receive Date: 20170921
  Receipt Date: 20171002
  Transmission Date: 20180321
  Serious: Yes (Death, Other)
  Sender: FDA-Public Use
  Company Number: JP-PFIZER INC-2017409112

PATIENT
  Age: 65 Year
  Sex: Male

DRUGS (3)
  1. GLYCYRON [Concomitant]
     Active Substance: AMMONIUM GLYCYRRHIZATE\GLYCINE\METHIONINE
     Dosage: UNK
     Dates: start: 20170515
  2. VFEND [Suspect]
     Active Substance: VORICONAZOLE
     Indication: ASPERGILLUS INFECTION
     Dosage: 200 MG, 2X/DAY
     Route: 048
     Dates: start: 20170324, end: 20170326
  3. VFEND [Suspect]
     Active Substance: VORICONAZOLE
     Dosage: 100 MG, 2X/DAY
     Route: 048
     Dates: end: 20170526

REACTIONS (3)
  - Hepatitis fulminant [Fatal]
  - Hepatic function abnormal [Unknown]
  - Photophobia [Unknown]

NARRATIVE: CASE EVENT DATE: 20170326
